FAERS Safety Report 16461097 (Version 1)
Quarter: 2019Q2

REPORT INFORMATION
  Report Type: Spontaneous
  Country: FR (occurrence: FR)
  Receive Date: 20190621
  Receipt Date: 20190621
  Transmission Date: 20190711
  Serious: Yes (Hospitalization)
  Sender: FDA-Public Use
  Company Number: FR-SUN PHARMACEUTICAL INDUSTRIES LTD-2019RR-211107

PATIENT
  Age: 55 Year
  Sex: Male
  Weight: 134 kg

DRUGS (5)
  1. FENOFIBRATE. [Suspect]
     Active Substance: FENOFIBRATE
     Indication: PRODUCT USED FOR UNKNOWN INDICATION
     Dosage: 1.6 GRAM, UNK
     Route: 048
     Dates: start: 20160815, end: 20160815
  2. PAROXETINE. [Suspect]
     Active Substance: PAROXETINE
     Indication: PRODUCT USED FOR UNKNOWN INDICATION
     Dosage: 240 MILLIGRAM, UNK
     Route: 048
     Dates: start: 20160815, end: 20160815
  3. METFORMIN [Suspect]
     Active Substance: METFORMIN HYDROCHLORIDE
     Indication: PRODUCT USED FOR UNKNOWN INDICATION
     Dosage: 38 GRAM, UNK
     Route: 048
     Dates: start: 20160815, end: 20160815
  4. PERINDOPRIL [Suspect]
     Active Substance: PERINDOPRIL
     Indication: PRODUCT USED FOR UNKNOWN INDICATION
     Dosage: 120 MILLIGRAM, UNK
     Route: 048
     Dates: start: 20160815, end: 20160815
  5. GLICLAZIDE [Suspect]
     Active Substance: GLICLAZIDE
     Indication: PRODUCT USED FOR UNKNOWN INDICATION
     Dosage: 3.7 GRAM, UNK
     Route: 048
     Dates: start: 20160815, end: 20160815

REACTIONS (3)
  - Suicide attempt [Unknown]
  - Renal failure [Not Recovered/Not Resolved]
  - Glomerulonephritis [Not Recovered/Not Resolved]

NARRATIVE: CASE EVENT DATE: 20160815
